FAERS Safety Report 5585521-0 (Version None)
Quarter: 2008Q1

REPORT INFORMATION
  Report Type: 
  Country: None (occurrence: None)
  Receive Date: 20080109
  Receipt Date: 20080108
  Transmission Date: 20080703
  Serious: Yes (Other)
  Sender: FDA-Public Use
  Company Number: A0702022A

PATIENT
  Age: 20 Year
  Sex: Male

DRUGS (1)
  1. PAXIL [Suspect]
     Indication: ANXIETY
     Route: 048

REACTIONS (13)
  - ADVERSE EVENT [None]
  - DEPRESSED MOOD [None]
  - DEPRESSION [None]
  - DRUG DEPENDENCE [None]
  - DRUG INEFFECTIVE [None]
  - HEADACHE [None]
  - HYPERSOMNIA [None]
  - PAIN [None]
  - PERSONALITY CHANGE [None]
  - POLLAKIURIA [None]
  - SPEECH DISORDER [None]
  - TREMOR [None]
  - WITHDRAWAL SYNDROME [None]
